FAERS Safety Report 7585038-8 (Version None)
Quarter: 2011Q2

REPORT INFORMATION
  Report Type: 
  Country: None (occurrence: None)
  Receive Date: 20110630
  Receipt Date: 20110622
  Transmission Date: 20111010
  Serious: Yes (Hospitalization, Other)
  Sender: FDA-Public Use
  Company Number: US-RB-027298-11

PATIENT
  Age: 27 Year
  Sex: Male

DRUGS (5)
  1. SUBOXONE [Suspect]
     Indication: DRUG DEPENDENCE
     Dosage: SUBLINGUAL FILM; VARIOUS DOSES AT PRESENT 16 MG DAILY
     Route: 060
     Dates: start: 20101101
  2. LAMICTAL [Concomitant]
     Indication: OBSESSIVE-COMPULSIVE DISORDER
     Route: 065
  3. TRAZODONE HCL [Concomitant]
     Indication: SLEEP DISORDER
     Route: 065
  4. RISPERDAL [Concomitant]
     Indication: ANXIETY DISORDER
     Route: 065
  5. ZOLOFT [Concomitant]
     Indication: DEPRESSION
     Route: 065

REACTIONS (6)
  - UNDERDOSE [None]
  - BLOOD TESTOSTERONE DECREASED [None]
  - FATIGUE [None]
  - OFF LABEL USE [None]
  - ALCOHOLISM [None]
  - HOSPITALISATION [None]
